FAERS Safety Report 15304376 (Version 3)
Quarter: 2019Q1

REPORT INFORMATION
  Report Type: Spontaneous
  Country: US (occurrence: US)
  Receive Date: 20180821
  Receipt Date: 20190305
  Transmission Date: 20190417
  Serious: No
  Sender: FDA-Public Use
  Company Number: US-AMGEN INC.-USASP2018101114

PATIENT
  Age: 83 Year
  Sex: Female

DRUGS (4)
  1. EXCEDRIN [Concomitant]
     Active Substance: ACETAMINOPHEN\ASPIRIN\CAFFEINE
     Indication: MIGRAINE
     Dosage: UNK, AS NECESSARY
  2. AIMOVIG [Suspect]
     Active Substance: ERENUMAB-AOOE
     Indication: MIGRAINE PROPHYLAXIS
     Dosage: 70 MG, QMO
     Route: 065
     Dates: start: 20180720
  3. AIMOVIG [Suspect]
     Active Substance: ERENUMAB-AOOE
     Dosage: 140 MG, QMO
     Route: 065
     Dates: start: 201901
  4. CALCIUM [Suspect]
     Active Substance: CALCIUM
     Indication: BONE DISORDER
     Dosage: UNK
     Route: 065
     Dates: start: 201811

REACTIONS (4)
  - Accidental exposure to product [Unknown]
  - Product storage error [Unknown]
  - Drug effect incomplete [Unknown]
  - Wrong technique in product usage process [Unknown]

NARRATIVE: CASE EVENT DATE: 2018
